FAERS Safety Report 7315271-1 (Version None)
Quarter: 2011Q1

REPORT INFORMATION
  Report Type: 
  Country: None (occurrence: None)
  Receive Date: 20110225
  Receipt Date: 20110215
  Transmission Date: 20110831
  Serious: Yes (Death)
  Sender: FDA-Public Use
  Company Number: ES-ELI_LILLY_AND_COMPANY-ES201008004368

PATIENT
  Sex: Male

DRUGS (4)
  1. CALCIO [Concomitant]
     Indication: OSTEOPOROSIS
     Dosage: UNK, UNKNOWN
     Route: 048
  2. INSULINA                           /01223201/ [Concomitant]
     Indication: DIABETES MELLITUS
     Dosage: UNK, UNKNOWN
  3. HIERRO [Concomitant]
     Indication: ANAEMIA
     Dosage: UNK, UNKNOWN
     Route: 048
  4. FORTEO [Suspect]
     Indication: OSTEOPOROSIS
     Dosage: 20 UG, DAILY (1/D)
     Route: 058
     Dates: start: 20090403

REACTIONS (1)
  - MULTI-ORGAN FAILURE [None]
